FAERS Safety Report 6180919-4 (Version None)
Quarter: 2009Q2

REPORT INFORMATION
  Report Type: 
  Country: None (occurrence: None)
  Receive Date: 20090506
  Receipt Date: 20090210
  Transmission Date: 20091009
  Serious: No
  Sender: FDA-Public Use
  Company Number: US-BAYER-200910560BCC

PATIENT
  Age: 22 Year
  Sex: Female

DRUGS (1)
  1. ALEVE [Suspect]
     Indication: DYSMENORRHOEA
     Dosage: AS USED: 880 MG  UNIT DOSE: 220 MG
     Route: 048
     Dates: start: 20090209

REACTIONS (4)
  - BACK PAIN [None]
  - CHEST PAIN [None]
  - DYSMENORRHOEA [None]
  - PAINFUL RESPIRATION [None]
